FAERS Safety Report 7263882-4 (Version None)
Quarter: 2011Q1

REPORT INFORMATION
  Report Type: 
  Country: None (occurrence: None)
  Receive Date: 20110130
  Receipt Date: 20101203
  Transmission Date: 20110831
  Serious: No
  Sender: FDA-Public Use
  Company Number: US-ABBOTT-10P-163-0690089-00

PATIENT
  Sex: Female
  Weight: 84.898 kg

DRUGS (26)
  1. LOVAZA [Concomitant]
     Indication: PRODUCT USED FOR UNKNOWN INDICATION
  2. HUMIRA [Suspect]
     Indication: ANKYLOSING SPONDYLITIS
     Dosage: 40MG EOW, DISCONTINUED BY MD ON 17-NOV-2010, BUT HAD LAST INJECTION ON 28 OCT 2010.
     Route: 058
     Dates: end: 20101028
  3. LYRICA [Concomitant]
     Indication: PRODUCT USED FOR UNKNOWN INDICATION
     Route: 048
  4. FOLBIC [Concomitant]
     Indication: PRODUCT USED FOR UNKNOWN INDICATION
  5. ASPIRIN [Concomitant]
     Indication: PRODUCT USED FOR UNKNOWN INDICATION
  6. CLONAZEPAM [Concomitant]
     Indication: PRODUCT USED FOR UNKNOWN INDICATION
     Dosage: PRN
  7. LIDOCAINE HYDROCHLORIDE IN PLASTIC CONTAINER [Concomitant]
     Indication: PRODUCT USED FOR UNKNOWN INDICATION
     Dosage: PATCH; PRN
  8. ACTIQ [Concomitant]
     Indication: PRODUCT USED FOR UNKNOWN INDICATION
  9. MARIJUANA [Concomitant]
     Indication: PRODUCT USED FOR UNKNOWN INDICATION
  10. LISINOPRIL [Concomitant]
     Indication: PRODUCT USED FOR UNKNOWN INDICATION
  11. ZINC [Concomitant]
     Indication: PRODUCT USED FOR UNKNOWN INDICATION
  12. ZETIA [Concomitant]
     Indication: PRODUCT USED FOR UNKNOWN INDICATION
  13. MULTI-VITAMIN [Concomitant]
     Indication: PRODUCT USED FOR UNKNOWN INDICATION
  14. GLUCOSAMINE CHONDROITIN [Concomitant]
     Indication: PRODUCT USED FOR UNKNOWN INDICATION
  15. MORPHINE [Concomitant]
     Indication: PRODUCT USED FOR UNKNOWN INDICATION
     Dosage: PUMP
  16. PROCRIT [Concomitant]
     Indication: PRODUCT USED FOR UNKNOWN INDICATION
  17. PRAVASTATIN [Concomitant]
     Indication: PRODUCT USED FOR UNKNOWN INDICATION
  18. VITAMIN D [Concomitant]
     Indication: PRODUCT USED FOR UNKNOWN INDICATION
  19. SPINAL CHORD STIMULATOR [Concomitant]
     Indication: PRODUCT USED FOR UNKNOWN INDICATION
  20. TALMAG [Concomitant]
     Indication: PRODUCT USED FOR UNKNOWN INDICATION
  21. ASCORBIC ACID [Concomitant]
     Indication: PRODUCT USED FOR UNKNOWN INDICATION
  22. VALTREX [Concomitant]
     Indication: HERPES VIRUS INFECTION
     Dosage: PRN
  23. AMRIX [Concomitant]
     Indication: PRODUCT USED FOR UNKNOWN INDICATION
     Dosage: PRN
  24. MARIJUANA [Concomitant]
     Indication: PAIN
     Dosage: PRESCRIBED BY MD: DAILY
  25. TIZANIDINE HCL [Concomitant]
     Indication: PRODUCT USED FOR UNKNOWN INDICATION
     Dosage: PRN
  26. VITAMIN E [Concomitant]
     Indication: PRODUCT USED FOR UNKNOWN INDICATION

REACTIONS (7)
  - ORAL HERPES [None]
  - INJECTION SITE PAIN [None]
  - MOBILITY DECREASED [None]
  - WALKING AID USER [None]
  - HERPES ZOSTER [None]
  - NEURALGIA [None]
  - UNEVALUABLE EVENT [None]
